FAERS Safety Report 6930148-9 (Version None)
Quarter: 2010Q3

REPORT INFORMATION
  Report Type: 
  Country: None (occurrence: None)
  Receive Date: 20100813
  Receipt Date: 20100727
  Transmission Date: 20110219
  Serious: Yes (Hospitalization)
  Sender: FDA-Public Use
  Company Number: 7012575

PATIENT
  Age: 24 Year
  Sex: Female

DRUGS (6)
  1. REBIF [Suspect]
     Indication: RELAPSING-REMITTING MULTIPLE SCLEROSIS
     Dosage: 3 IN 1 WK, SUBCUTANEOUS; 22 MCG, 3 IN 1 WK, SUBCUTANEOUS
     Route: 058
     Dates: end: 20100305
  2. REBIF [Suspect]
     Indication: RELAPSING-REMITTING MULTIPLE SCLEROSIS
     Dosage: 3 IN 1 WK, SUBCUTANEOUS; 22 MCG, 3 IN 1 WK, SUBCUTANEOUS
     Route: 058
     Dates: start: 20100415
  3. MANTIDAN (AMANTADINE HYDROCHLORIDE) [Concomitant]
  4. PURAN T4 (LEVOTHYROXINE SODIUM) [Concomitant]
  5. ALPRAZOLAM [Concomitant]
  6. MINIMA (FEMODENE) [Concomitant]

REACTIONS (3)
  - ERYTHEMA [None]
  - MULTIPLE SCLEROSIS RELAPSE [None]
  - MUSCULAR WEAKNESS [None]
